FAERS Safety Report 10757178 (Version 2)
Quarter: 2015Q1

REPORT INFORMATION
  Report Type: Spontaneous
  Country: DE (occurrence: None)
  Receive Date: 20150130
  Receipt Date: 20150209
  Transmission Date: 20150721
  Serious: Yes (Death, Other)
  Sender: FDA-Public Use
  Company Number: KAD201308-001079

PATIENT
  Age: 58 Year
  Sex: Male

DRUGS (4)
  1. TACROLIMUS. [Concomitant]
     Active Substance: TACROLIMUS
  2. EVEROLIMUS [Concomitant]
     Active Substance: EVEROLIMUS
  3. RIBAVIRIN (RIBAVIRIN) [Suspect]
     Active Substance: RIBAVIRIN
     Indication: HEPATITIS E
     Route: 048
  4. DECORTIN [Concomitant]
     Active Substance: PREDNISONE

REACTIONS (5)
  - Product use issue [None]
  - Hepatitis [None]
  - Anaemia [None]
  - Treatment failure [None]
  - Hepatic failure [None]
